FAERS Safety Report 8025024-7 (Version None)
Quarter: 2011Q4

REPORT INFORMATION
  Report Type: 
  Country: None (occurrence: None)
  Receive Date: 20111130
  Receipt Date: 20101111
  Transmission Date: 20120403
  Serious: Yes (Hospitalization)
  Sender: FDA-Public Use
  Company Number: TRP_07384_2010

PATIENT
  Age: 46 Year
  Sex: Male
  Weight: 54.8852 kg

DRUGS (8)
  1. CELEXA [Concomitant]
  2. RIBAVIRIN [Suspect]
     Indication: HEPATITIS C
     Dosage: 1000 MILLIGRAM 400/60 MG, ORAL
     Route: 048
     Dates: start: 20100722, end: 20101111
  3. INTERFERON ALFACON-1 (INTERFERON ALFACON-1) (15 MICROGRAM) [Suspect]
     Indication: HEPATITIS C
     Dosage: 15 MICROGRAM DAILY, 1 IN 1 D, SUBCUTANEOUS
     Route: 058
     Dates: start: 20100722, end: 20101111
  4. LISINOPRIL [Concomitant]
  5. CREON [Concomitant]
  6. NORVASC [Concomitant]
  7. LANTUS [Concomitant]
  8. ASPIRIN [Concomitant]

REACTIONS (2)
  - ANAEMIA [None]
  - WEIGHT DECREASED [None]
